FAERS Safety Report 4971065-3 (Version None)
Quarter: 2006Q1

REPORT INFORMATION
  Report Type: 
  Country: None (occurrence: None)
  Receive Date: 20060207
  Receipt Date: 20050510
  Transmission Date: 20060701
  Serious: Yes (Hospitalization, Other)
  Sender: FDA-Public Use
  Company Number: US_990318710

PATIENT
  Age: 79 Year
  Sex: Female
  Weight: 50 kg

DRUGS (15)
  1. HUMALOG [Suspect]
     Indication: DIABETES MELLITUS
     Dates: start: 19970101
  2. HUMULIN N [Suspect]
     Indication: DIABETES MELLITUS
     Dosage: 16 U/IN THE MORNING
     Dates: end: 20010925
  3. EVISTA [Suspect]
     Indication: OSTEOPENIA
     Dosage: 60 MG/1 DAY
     Dates: start: 20020729, end: 20020819
  4. HUMULIN R [Suspect]
     Indication: DIABETES MELLITUS
  5. INSULIN [Suspect]
     Indication: DIABETES MELLITUS
  6. VELOX (RIMEXOLONE) [Concomitant]
  7. ACULAR [Concomitant]
  8. NEPTAZANE (METHAZOLAMIDE) [Concomitant]
  9. LANTUS [Concomitant]
  10. CALCIUM WITH VITAMIN D [Concomitant]
  11. MULTI-VITAMIN [Concomitant]
  12. ASPIRIN [Concomitant]
  13. PREMARIN [Concomitant]
  14. LOTENSIN [Concomitant]
  15. ALPHAGAN [Concomitant]

REACTIONS (27)
  - ANKLE FRACTURE [None]
  - ARTHRALGIA [None]
  - ARTHRITIS [None]
  - BLOOD GLUCOSE DECREASED [None]
  - BLOOD GLUCOSE INCREASED [None]
  - BONE DENSITY DECREASED [None]
  - CATARACT [None]
  - DUODENAL ULCER [None]
  - ERUCTATION [None]
  - EYE DISORDER [None]
  - EYE INFLAMMATION [None]
  - EYE PAIN [None]
  - FALL [None]
  - FLATULENCE [None]
  - HAND FRACTURE [None]
  - HIP FRACTURE [None]
  - HYPERSOMNIA [None]
  - HYPERTENSION [None]
  - INJECTION SITE HAEMORRHAGE [None]
  - INJECTION SITE PAIN [None]
  - JOINT SWELLING [None]
  - LOSS OF CONSCIOUSNESS [None]
  - MACULAR OEDEMA [None]
  - POOR PERIPHERAL CIRCULATION [None]
  - RASH [None]
  - ROAD TRAFFIC ACCIDENT [None]
  - VISUAL ACUITY REDUCED [None]
